FAERS Safety Report 13995939 (Version 3)
Quarter: 2017Q4

REPORT INFORMATION
  Report Type: Report from Study
  Country: US (occurrence: US)
  Receive Date: 20170921
  Receipt Date: 20171221
  Transmission Date: 20180321
  Serious: Yes (Other)
  Sender: FDA-Public Use
  Company Number: US-BAYER-2017-165348

PATIENT
  Age: 54 Year
  Sex: Male
  Weight: 204.8 kg

DRUGS (6)
  1. COUMADIN [Concomitant]
     Active Substance: WARFARIN SODIUM
     Dosage: UNK
  2. DILTIAZEM. [Concomitant]
     Active Substance: DILTIAZEM
     Dosage: UNK
  3. ADEMPAS [Suspect]
     Active Substance: RIOCIGUAT
     Indication: PULMONARY HYPERTENSION
     Dosage: 0.5 MG, TID
     Route: 048
     Dates: start: 20160825
  4. ADEMPAS [Suspect]
     Active Substance: RIOCIGUAT
     Indication: PULMONARY HYPERTENSION
     Dosage: 1 MG, TID
  5. ADEMPAS [Suspect]
     Active Substance: RIOCIGUAT
     Indication: PULMONARY HYPERTENSION
     Dosage: 0.5 MG, BID
     Route: 048
  6. ADEMPAS [Suspect]
     Active Substance: RIOCIGUAT
     Indication: PULMONARY HYPERTENSION
     Dosage: 0.5 MG, BID
     Route: 048

REACTIONS (16)
  - Chills [Not Recovered/Not Resolved]
  - Limb operation [None]
  - Screaming [Unknown]
  - Incorrect dosage administered [None]
  - Gallbladder disorder [None]
  - Nervousness [None]
  - Tremor [None]
  - Feeling cold [Not Recovered/Not Resolved]
  - Malaise [None]
  - Palpitations [Unknown]
  - Vomiting [Unknown]
  - Haemorrhage [None]
  - Peripheral swelling [Not Recovered/Not Resolved]
  - Gait disturbance [None]
  - Dizziness [Unknown]
  - Fear [None]

NARRATIVE: CASE EVENT DATE: 201708
